FAERS Safety Report 6141127-6 (Version None)
Quarter: 2009Q2

REPORT INFORMATION
  Report Type: 
  Country: None (occurrence: None)
  Receive Date: 20090402
  Receipt Date: 20090330
  Transmission Date: 20091009
  Serious: No
  Sender: FDA-Public Use
  Company Number: US-B.I. PHARMACEUTICALS,INC./RIDGEFIELD-2009-BP-03214BP

PATIENT
  Sex: Male

DRUGS (8)
  1. SPIRIVA [Suspect]
     Indication: CHRONIC OBSTRUCTIVE PULMONARY DISEASE
     Dosage: 18MCG
     Route: 055
     Dates: start: 20040101
  2. ALBUTEROL [Concomitant]
     Indication: CHRONIC OBSTRUCTIVE PULMONARY DISEASE
     Dosage: 4PUF
  3. CHOLESTEROL PILL [Concomitant]
     Indication: PROPHYLAXIS
  4. POTASSIUM CHLORIDE [Concomitant]
     Indication: SUPPLEMENTATION THERAPY
  5. ANENTOL [Concomitant]
  6. OMEPRAZOLE [Concomitant]
  7. SIMVASTAIN [Concomitant]
  8. SEREVENT [Concomitant]

REACTIONS (4)
  - CARDIAC DISORDER [None]
  - CONSTIPATION [None]
  - DRUG INEFFECTIVE [None]
  - JOINT SWELLING [None]
